FAERS Safety Report 24956629 (Version 2)
Quarter: 2025Q2

REPORT INFORMATION
  Report Type: Spontaneous
  Country: CA (occurrence: CA)
  Receive Date: 20250211
  Receipt Date: 20250603
  Transmission Date: 20250716
  Serious: Yes (Death, Other)
  Sender: MYLAN
  Company Number: CA-MYLANLABS-2025M1011646

PATIENT
  Age: 58 Year
  Sex: Male

DRUGS (64)
  1. SERTRALINE [Suspect]
     Active Substance: SERTRALINE HYDROCHLORIDE
     Indication: Compulsions
  2. SERTRALINE [Suspect]
     Active Substance: SERTRALINE HYDROCHLORIDE
     Route: 065
  3. SERTRALINE [Suspect]
     Active Substance: SERTRALINE HYDROCHLORIDE
     Route: 065
  4. SERTRALINE [Suspect]
     Active Substance: SERTRALINE HYDROCHLORIDE
  5. CITALOPRAM HYDROBROMIDE [Suspect]
     Active Substance: CITALOPRAM HYDROBROMIDE
     Indication: Product used for unknown indication
     Dosage: 10 MILLIGRAM, BID (2 EVERY 1 DAYS)
  6. CITALOPRAM HYDROBROMIDE [Suspect]
     Active Substance: CITALOPRAM HYDROBROMIDE
     Dosage: 10 MILLIGRAM, BID (2 EVERY 1 DAYS)
     Route: 048
  7. CITALOPRAM HYDROBROMIDE [Suspect]
     Active Substance: CITALOPRAM HYDROBROMIDE
     Dosage: 10 MILLIGRAM, BID (2 EVERY 1 DAYS)
     Route: 048
  8. CITALOPRAM HYDROBROMIDE [Suspect]
     Active Substance: CITALOPRAM HYDROBROMIDE
     Dosage: 10 MILLIGRAM, BID (2 EVERY 1 DAYS)
  9. CITALOPRAM [Suspect]
     Active Substance: CITALOPRAM
     Indication: Product used for unknown indication
     Dosage: 100 MILLIGRAM, BID (2 EVERY 1 DAYS)
  10. CITALOPRAM [Suspect]
     Active Substance: CITALOPRAM
     Dosage: 100 MILLIGRAM, BID (2 EVERY 1 DAYS)
     Route: 048
  11. CITALOPRAM [Suspect]
     Active Substance: CITALOPRAM
     Dosage: 100 MILLIGRAM, BID (2 EVERY 1 DAYS)
     Route: 048
  12. CITALOPRAM [Suspect]
     Active Substance: CITALOPRAM
     Dosage: 100 MILLIGRAM, BID (2 EVERY 1 DAYS)
  13. CLOMIPRAMINE [Suspect]
     Active Substance: CLOMIPRAMINE
     Indication: Obsessive-compulsive disorder
     Dosage: 100 MILLIGRAM, QD (1 EVERY 1 DAYS)
     Route: 048
  14. CLOMIPRAMINE [Suspect]
     Active Substance: CLOMIPRAMINE
     Dosage: 100 MILLIGRAM, QD (1 EVERY 1 DAYS)
  15. CLOMIPRAMINE [Suspect]
     Active Substance: CLOMIPRAMINE
     Dosage: 100 MILLIGRAM, QD (1 EVERY 1 DAYS)
  16. CLOMIPRAMINE [Suspect]
     Active Substance: CLOMIPRAMINE
     Dosage: 100 MILLIGRAM, QD (1 EVERY 1 DAYS)
     Route: 048
  17. CLOMIPRAMINE [Suspect]
     Active Substance: CLOMIPRAMINE
     Dosage: 25 MILLIGRAM, QD (1 EVERY 1 DAYS)
  18. CLOMIPRAMINE [Suspect]
     Active Substance: CLOMIPRAMINE
     Dosage: 25 MILLIGRAM, QD (1 EVERY 1 DAYS)
  19. CLOMIPRAMINE [Suspect]
     Active Substance: CLOMIPRAMINE
     Dosage: 25 MILLIGRAM, QD (1 EVERY 1 DAYS)
     Route: 048
  20. CLOMIPRAMINE [Suspect]
     Active Substance: CLOMIPRAMINE
     Dosage: 25 MILLIGRAM, QD (1 EVERY 1 DAYS)
     Route: 048
  21. CLOMIPRAMINE [Suspect]
     Active Substance: CLOMIPRAMINE
     Route: 065
  22. CLOMIPRAMINE [Suspect]
     Active Substance: CLOMIPRAMINE
  23. CLOMIPRAMINE [Suspect]
     Active Substance: CLOMIPRAMINE
  24. CLOMIPRAMINE [Suspect]
     Active Substance: CLOMIPRAMINE
     Route: 065
  25. ESCITALOPRAM [Suspect]
     Active Substance: ESCITALOPRAM OXALATE
     Indication: Product used for unknown indication
     Dosage: 10 MILLIGRAM, QD (1 EVERY 1 DAYS)
  26. ESCITALOPRAM [Suspect]
     Active Substance: ESCITALOPRAM OXALATE
     Dosage: 10 MILLIGRAM, QD (1 EVERY 1 DAYS)
     Route: 065
  27. ESCITALOPRAM [Suspect]
     Active Substance: ESCITALOPRAM OXALATE
     Dosage: 10 MILLIGRAM, QD (1 EVERY 1 DAYS)
     Route: 065
  28. ESCITALOPRAM [Suspect]
     Active Substance: ESCITALOPRAM OXALATE
     Dosage: 10 MILLIGRAM, QD (1 EVERY 1 DAYS)
  29. HALOPERIDOL [Suspect]
     Active Substance: HALOPERIDOL
     Indication: Product used for unknown indication
     Dosage: 1 MILLIGRAM, QD (1 EVERY 1 DAYS)
  30. HALOPERIDOL [Suspect]
     Active Substance: HALOPERIDOL
     Dosage: 1 MILLIGRAM, QD (1 EVERY 1 DAYS)
     Route: 065
  31. HALOPERIDOL [Suspect]
     Active Substance: HALOPERIDOL
     Dosage: 1 MILLIGRAM, QD (1 EVERY 1 DAYS)
     Route: 065
  32. HALOPERIDOL [Suspect]
     Active Substance: HALOPERIDOL
     Dosage: 1 MILLIGRAM, QD (1 EVERY 1 DAYS)
  33. OLANZAPINE [Suspect]
     Active Substance: OLANZAPINE
     Indication: Product used for unknown indication
     Dosage: 15 MILLIGRAM, QD ( 1 EVERY 1 DAYS)
  34. OLANZAPINE [Suspect]
     Active Substance: OLANZAPINE
     Dosage: 15 MILLIGRAM, QD ( 1 EVERY 1 DAYS)
     Route: 048
  35. OLANZAPINE [Suspect]
     Active Substance: OLANZAPINE
     Dosage: 15 MILLIGRAM, QD ( 1 EVERY 1 DAYS)
     Route: 048
  36. OLANZAPINE [Suspect]
     Active Substance: OLANZAPINE
     Dosage: 15 MILLIGRAM, QD ( 1 EVERY 1 DAYS)
  37. PAROXETINE [Suspect]
     Active Substance: PAROXETINE
     Indication: Product used for unknown indication
     Dosage: UNK, QD (1 EVERY 1 DAYS)
  38. PAROXETINE [Suspect]
     Active Substance: PAROXETINE
     Dosage: UNK, QD (1 EVERY 1 DAYS)
     Route: 065
  39. PAROXETINE [Suspect]
     Active Substance: PAROXETINE
     Dosage: UNK, QD (1 EVERY 1 DAYS)
     Route: 065
  40. PAROXETINE [Suspect]
     Active Substance: PAROXETINE
     Dosage: UNK, QD (1 EVERY 1 DAYS)
  41. PAROXETINE HYDROCHLORIDE [Suspect]
     Active Substance: PAROXETINE HYDROCHLORIDE
     Indication: Product used for unknown indication
     Dosage: 5 MILLIGRAM, QD (1 EVERY 1 DAYS)
  42. PAROXETINE HYDROCHLORIDE [Suspect]
     Active Substance: PAROXETINE HYDROCHLORIDE
     Dosage: 5 MILLIGRAM, QD (1 EVERY 1 DAYS)
  43. PAROXETINE HYDROCHLORIDE [Suspect]
     Active Substance: PAROXETINE HYDROCHLORIDE
     Dosage: 5 MILLIGRAM, QD (1 EVERY 1 DAYS)
     Route: 065
  44. PAROXETINE HYDROCHLORIDE [Suspect]
     Active Substance: PAROXETINE HYDROCHLORIDE
     Dosage: 5 MILLIGRAM, QD (1 EVERY 1 DAYS)
     Route: 065
  45. PAROXETINE HYDROCHLORIDE [Suspect]
     Active Substance: PAROXETINE HYDROCHLORIDE
     Dosage: 10 MILLIGRAM, QD (1 EVERY 1 DAYS)
  46. PAROXETINE HYDROCHLORIDE [Suspect]
     Active Substance: PAROXETINE HYDROCHLORIDE
     Dosage: 10 MILLIGRAM, QD (1 EVERY 1 DAYS)
  47. PAROXETINE HYDROCHLORIDE [Suspect]
     Active Substance: PAROXETINE HYDROCHLORIDE
     Dosage: 10 MILLIGRAM, QD (1 EVERY 1 DAYS)
     Route: 065
  48. PAROXETINE HYDROCHLORIDE [Suspect]
     Active Substance: PAROXETINE HYDROCHLORIDE
     Dosage: 10 MILLIGRAM, QD (1 EVERY 1 DAYS)
     Route: 065
  49. QUETIAPINE [Suspect]
     Active Substance: QUETIAPINE
     Indication: Product used for unknown indication
     Dosage: 25 MILLIGRAM, QD (1 EVERY 1 DAYS)
  50. QUETIAPINE [Suspect]
     Active Substance: QUETIAPINE
     Dosage: 25 MILLIGRAM, QD (1 EVERY 1 DAYS)
     Route: 065
  51. QUETIAPINE [Suspect]
     Active Substance: QUETIAPINE
     Dosage: 25 MILLIGRAM, QD (1 EVERY 1 DAYS)
     Route: 065
  52. QUETIAPINE [Suspect]
     Active Substance: QUETIAPINE
     Dosage: 25 MILLIGRAM, QD (1 EVERY 1 DAYS)
  53. QUETIAPINE FUMARATE [Suspect]
     Active Substance: QUETIAPINE FUMARATE
     Indication: Product used for unknown indication
     Dosage: 25 MILLIGRAM, QD (1 EVERY 1 DAYS)
  54. QUETIAPINE FUMARATE [Suspect]
     Active Substance: QUETIAPINE FUMARATE
     Dosage: 25 MILLIGRAM, QD (1 EVERY 1 DAYS)
     Route: 065
  55. QUETIAPINE FUMARATE [Suspect]
     Active Substance: QUETIAPINE FUMARATE
     Dosage: 25 MILLIGRAM, QD (1 EVERY 1 DAYS)
     Route: 065
  56. QUETIAPINE FUMARATE [Suspect]
     Active Substance: QUETIAPINE FUMARATE
     Dosage: 25 MILLIGRAM, QD (1 EVERY 1 DAYS)
  57. TRAZODONE [Suspect]
     Active Substance: TRAZODONE HYDROCHLORIDE
     Indication: Product used for unknown indication
  58. TRAZODONE [Suspect]
     Active Substance: TRAZODONE HYDROCHLORIDE
     Route: 065
  59. TRAZODONE [Suspect]
     Active Substance: TRAZODONE HYDROCHLORIDE
     Route: 065
  60. TRAZODONE [Suspect]
     Active Substance: TRAZODONE HYDROCHLORIDE
  61. VALPROIC ACID [Concomitant]
     Active Substance: VALPROIC ACID
     Indication: Product used for unknown indication
  62. VALPROIC ACID [Concomitant]
     Active Substance: VALPROIC ACID
     Route: 065
  63. VALPROIC ACID [Concomitant]
     Active Substance: VALPROIC ACID
     Route: 065
  64. VALPROIC ACID [Concomitant]
     Active Substance: VALPROIC ACID

REACTIONS (13)
  - Abdominal pain upper [Fatal]
  - Confusional state [Fatal]
  - Hyperhidrosis [Fatal]
  - Myalgia [Fatal]
  - Parkinsonism [Fatal]
  - Patient elopement [Fatal]
  - Sleep disorder [Fatal]
  - Death [Fatal]
  - Drug ineffective [Fatal]
  - Drug intolerance [Fatal]
  - Resting tremor [Unknown]
  - Bradykinesia [Unknown]
  - Cogwheel rigidity [Unknown]
